FAERS Safety Report 20539113 (Version 1)
Quarter: 2022Q1

REPORT INFORMATION
  Report Type: Spontaneous
  Country: DE (occurrence: DE)
  Receive Date: 20220302
  Receipt Date: 20220302
  Transmission Date: 20220423
  Serious: Yes (Other)
  Sender: FDA-Public Use
  Company Number: DE-EMBRYOTOX-202008772

PATIENT
  Age: 39 Year
  Sex: Female
  Weight: 60 kg

DRUGS (1)
  1. IBUPROFEN [Suspect]
     Active Substance: IBUPROFEN
     Indication: Headache
     Dosage: 400 [MG/D (BIS 200 MG/D) ]/ GW 38+2: 400MG; GW 38+5: 200MG; GW 39:400MG
     Route: 048
     Dates: start: 20200807, end: 20200812

REACTIONS (4)
  - Ultrasound Doppler abnormal [Unknown]
  - Ductus arteriosus stenosis foetal [Unknown]
  - Oligohydramnios [Unknown]
  - Exposure during pregnancy [Unknown]
